FAERS Safety Report 9660853 (Version 3)
Quarter: 2013Q4

REPORT INFORMATION
  Report Type: Report from Study
  Country: CA (occurrence: CA)
  Receive Date: 20131031
  Receipt Date: 20131217
  Transmission Date: 20140711
  Serious: Yes (Other)
  Sender: FDA-Public Use
  Company Number: CA-ROCHE-1296669

PATIENT
  Sex: Female
  Weight: 59 kg

DRUGS (7)
  1. ACTEMRA [Suspect]
     Indication: RHEUMATOID ARTHRITIS
     Route: 042
     Dates: start: 2010
  2. ACTEMRA [Suspect]
     Route: 042
     Dates: start: 20120815
  3. PREDNISONE [Concomitant]
  4. RAMIPRIL [Concomitant]
  5. HYDROCHLOROTHIAZIDE [Concomitant]
  6. FOSAVANCE [Concomitant]
  7. METHOTREXATE [Concomitant]

REACTIONS (2)
  - Musculoskeletal deformity [Not Recovered/Not Resolved]
  - Weight decreased [Unknown]
